FAERS Safety Report 13976447 (Version 1)
Quarter: 2017Q3

REPORT INFORMATION
  Report Type: Spontaneous
  Country: GB (occurrence: GB)
  Receive Date: 20170915
  Receipt Date: 20170915
  Transmission Date: 20171128
  Serious: Yes (Other)
  Sender: FDA-Public Use
  Company Number: GB-TEVA-804831ACC

PATIENT
  Age: 82 Year
  Sex: Female
  Weight: 59 kg

DRUGS (15)
  1. CLENIL MODULITE [Concomitant]
     Active Substance: BECLOMETHASONE DIPROPIONATE
     Dosage: 4 DOSAGE FORMS DAILY;
     Dates: start: 20150511
  2. DESLORATADINE. [Concomitant]
     Active Substance: DESLORATADINE
     Dosage: 1 DOSAGE FORMS DAILY;
     Dates: start: 20150511, end: 20170705
  3. DIGOXIN. [Concomitant]
     Active Substance: DIGOXIN
     Dosage: 1 DOSAGE FORMS DAILY;
     Dates: start: 20150511
  4. LAXIDO [Concomitant]
     Active Substance: POLYETHYLENE GLYCOL 3350\POTASSIUM CHLORIDE\SODIUM BICARBONATE\SODIUM CHLORIDE
     Dosage: USE AS DIRECTED
     Dates: start: 20170322
  5. CO-AMOXICLAV [Concomitant]
     Active Substance: AMOXICILLIN\CLAVULANIC ACID
     Dosage: 3 DOSAGE FORMS DAILY;
     Dates: start: 20170822
  6. IRBESARTAN. [Concomitant]
     Active Substance: IRBESARTAN
     Dosage: 1 DOSAGE FORMS DAILY;
     Dates: start: 20150511
  7. ADIZEM [Concomitant]
     Active Substance: DILTIAZEM HYDROCHLORIDE
     Dosage: 1 DOSAGE FORMS DAILY;
     Dates: start: 20150511
  8. CLINDAMYCIN. [Suspect]
     Active Substance: CLINDAMYCIN
     Dates: start: 20170822
  9. CETIRIZINE [Concomitant]
     Active Substance: CETIRIZINE HYDROCHLORIDE
     Dosage: 1 DOSAGE FORMS DAILY;
     Dates: start: 20170607
  10. PRAVASTATIN. [Concomitant]
     Active Substance: PRAVASTATIN
     Dosage: 1 DOSAGE FORMS DAILY;
     Dates: start: 20150511
  11. CLOBETASOL PROPIONATE. [Concomitant]
     Active Substance: CLOBETASOL PROPIONATE
     Dosage: APPLY 1-2 TIMES/DAY
     Dates: start: 20170524, end: 20170621
  12. CO-AMILOFRUSE [Concomitant]
     Active Substance: AMILORIDE\FUROSEMIDE
     Dosage: 1 DOSAGE FORMS DAILY;
     Dates: start: 20150511
  13. WARFARIN SODIUM. [Concomitant]
     Active Substance: WARFARIN SODIUM
     Dosage: AS DIRECTED BY INR
     Dates: start: 20150511
  14. VENTOLIN [Concomitant]
     Active Substance: ALBUTEROL SULFATE
     Dosage: AS DIRECTED
     Dates: start: 20161130
  15. FERROUS FUMARATE [Concomitant]
     Active Substance: FERROUS FUMARATE
     Dosage: TAKE ONE EVERY DAY INCREASING TO TWICE DAILY OR...
     Dates: start: 20170629

REACTIONS (3)
  - Rash [Unknown]
  - Hallucination [Unknown]
  - Nausea [Unknown]

NARRATIVE: CASE EVENT DATE: 20170823
